FAERS Safety Report 10664018 (Version 1)
Quarter: 2014Q4

REPORT INFORMATION
  Report Type: Spontaneous
  Country: US (occurrence: None)
  Receive Date: 20141218
  Receipt Date: 20141218
  Transmission Date: 20150529
  Serious: Yes (Hospitalization, Disabling)
  Sender: FDA-Public Use
  Company Number: None

PATIENT
  Age: 55 Year
  Sex: Male
  Weight: 120.2 kg

DRUGS (1)
  1. HUMIRA [Suspect]
     Active Substance: ADALIMUMAB
     Indication: RHEUMATOID ARTHRITIS
     Dosage: 40MG/0.8ML, ONCE VERY TWO WEEK, APPLIED TO A SURFACE, USUALLY THE SKIN

REACTIONS (4)
  - Dysstasia [None]
  - Skin mass [None]
  - Pain in extremity [None]
  - Abasia [None]

NARRATIVE: CASE EVENT DATE: 20141105
